FAERS Safety Report 10775321 (Version 2)
Quarter: 2015Q3

REPORT INFORMATION
  Report Type: Spontaneous
  Country: TR (occurrence: TR)
  Receive Date: 20150209
  Receipt Date: 20150708
  Transmission Date: 20151125
  Serious: Yes (Death)
  Sender: FDA-Public Use
  Company Number: TR-ROCHE-1532701

PATIENT
  Age: 69 Year
  Sex: Female
  Weight: 77 kg

DRUGS (4)
  1. OXALIPLATIN. [Concomitant]
     Active Substance: OXALIPLATIN
     Route: 065
  2. FOLIC ACID. [Concomitant]
     Active Substance: FOLIC ACID
     Route: 065
  3. 5-FU [Concomitant]
     Active Substance: FLUOROURACIL
     Route: 065
  4. ALTUZAN [Suspect]
     Active Substance: BEVACIZUMAB
     Indication: METASTASES TO PERITONEUM
     Dosage: 5 MG/KG
     Route: 042
     Dates: start: 20141222, end: 20141222

REACTIONS (2)
  - Ileus [Fatal]
  - Large intestine perforation [Fatal]

NARRATIVE: CASE EVENT DATE: 201501
